FAERS Safety Report 6732286-2 (Version None)
Quarter: 2010Q2

REPORT INFORMATION
  Report Type: 
  Country: None (occurrence: None)
  Receive Date: 20100519
  Receipt Date: 20100513
  Transmission Date: 20101027
  Serious: Yes (Other)
  Sender: FDA-Public Use
  Company Number: B0653327A

PATIENT
  Sex: Female
  Weight: 50 kg

DRUGS (2)
  1. LAMICTAL [Suspect]
     Indication: EPILEPSY
     Dosage: 100MG PER DAY
     Dates: start: 20100126, end: 20100423
  2. VALPROIC ACID [Concomitant]
     Indication: EPILEPSY
     Dosage: 1000MG PER DAY
     Route: 065
     Dates: start: 20100126

REACTIONS (3)
  - ELECTROENCEPHALOGRAM ABNORMAL [None]
  - EPILEPSY [None]
  - RASH [None]
